FAERS Safety Report 11048364 (Version 1)
Quarter: 2015Q2

REPORT INFORMATION
  Report Type: Report from Study
  Country: US (occurrence: US)
  Receive Date: 20150420
  Receipt Date: 20150420
  Transmission Date: 20150821
  Serious: Yes (Other)
  Sender: FDA-Public Use
  Company Number: US-BIOGENIDEC-2015BI050835

PATIENT
  Age: 56 Year
  Sex: Female

DRUGS (8)
  1. BUPROPION XL [Concomitant]
     Active Substance: BUPROPION
  2. TECFIDERA [Suspect]
     Active Substance: DIMETHYL FUMARATE
     Indication: MULTIPLE SCLEROSIS
     Route: 048
     Dates: start: 201501
  3. FLOVENT HFA [Concomitant]
     Active Substance: FLUTICASONE PROPIONATE
     Dosage: DOSE UNIT:220 MILLICURIES PER KILOGRAM
  4. PROAIR HFA [Concomitant]
     Active Substance: ALBUTEROL SULFATE
     Dosage: DOSE UNIT:90 MILLICURIES PER KILOGRAM
  5. VITAMIN D 1000 UN [Concomitant]
  6. PEPCID [Concomitant]
     Active Substance: FAMOTIDINE
  7. MELATONIN [Concomitant]
     Active Substance: MELATONIN
  8. OXYBUTYNIN CHLORIDE ER [Concomitant]

REACTIONS (1)
  - Macular hole [Not Recovered/Not Resolved]

NARRATIVE: CASE EVENT DATE: 201503
